FAERS Safety Report 20786169 (Version 1)
Quarter: 2022Q2

REPORT INFORMATION
  Report Type: Spontaneous
  Country: US (occurrence: None)
  Receive Date: 20220504
  Receipt Date: 20220504
  Transmission Date: 20220721
  Serious: No
  Sender: FDA-Public Use
  Company Number: US-ROCHE-2942809

PATIENT
  Sex: Female

DRUGS (4)
  1. OCREVUS [Suspect]
     Active Substance: OCRELIZUMAB
     Indication: Multiple sclerosis
     Dosage: 300MG IV DAY 1, THEN 300MG IV DAY 15 VIAL QUANTITY
     Route: 042
     Dates: start: 20210209
  2. KEFLEX [Concomitant]
     Active Substance: CEPHALEXIN
  3. LORTAB [Concomitant]
     Active Substance: ACETAMINOPHEN\HYDROCODONE BITARTRATE
  4. MORPHINE [Concomitant]
     Active Substance: MORPHINE

REACTIONS (2)
  - Hot flush [Unknown]
  - Nausea [Unknown]
